FAERS Safety Report 9231663 (Version 1)
Quarter: 2013Q2

REPORT INFORMATION
  Report Type: Report from Study
  Country: JP (occurrence: JP)
  Receive Date: 20130415
  Receipt Date: 20130415
  Transmission Date: 20140414
  Serious: Yes (Hospitalization, Other)
  Sender: FDA-Public Use
  Company Number: JP-BAXTER-2013BAX013578

PATIENT
  Age: 70 Year
  Sex: Male
  Weight: 63.4 kg

DRUGS (25)
  1. CYCLOPHOSPHAMIDE FOR INJECTION, USP [Suspect]
     Indication: NON-HODGKIN^S LYMPHOMA UNSPECIFIED HISTOLOGY INDOLENT
     Route: 042
     Dates: start: 20120224
  2. CYCLOPHOSPHAMIDE FOR INJECTION, USP [Suspect]
     Route: 042
     Dates: start: 20120426
  3. RITUXIMAB [Suspect]
     Indication: NON-HODGKIN^S LYMPHOMA UNSPECIFIED HISTOLOGY INDOLENT
     Route: 042
     Dates: start: 20120223
  4. RITUXIMAB [Suspect]
     Route: 042
     Dates: start: 20120426
  5. PREDNISOLONE [Suspect]
     Indication: NON-HODGKIN^S LYMPHOMA UNSPECIFIED HISTOLOGY INDOLENT
     Route: 048
     Dates: start: 20120223
  6. PREDNISOLONE [Suspect]
     Route: 048
     Dates: start: 20120430
  7. DOXORUBICIN [Suspect]
     Indication: NON-HODGKIN^S LYMPHOMA UNSPECIFIED HISTOLOGY INDOLENT
     Route: 042
     Dates: start: 20120224
  8. DOXORUBICIN [Suspect]
     Route: 042
     Dates: start: 20120427
  9. VINCRISTINE [Suspect]
     Indication: NON-HODGKIN^S LYMPHOMA UNSPECIFIED HISTOLOGY INDOLENT
     Route: 040
     Dates: start: 20120224
  10. VINCRISTINE [Suspect]
     Route: 040
     Dates: start: 20120427
  11. G-CSF [Concomitant]
     Indication: NEUTROPHIL COUNT DECREASED
     Route: 065
     Dates: start: 20120508, end: 20120510
  12. MECOBALAMIN [Concomitant]
     Indication: PRODUCT USED FOR UNKNOWN INDICATION
     Route: 065
     Dates: start: 20120512
  13. MAGNESIUM OXIDE [Concomitant]
     Indication: CONSTIPATION
     Route: 065
     Dates: start: 20120408, end: 20120408
  14. PARACETAMOL [Concomitant]
     Indication: PYREXIA
     Route: 065
     Dates: start: 20120419, end: 20120420
  15. PARACETAMOL [Concomitant]
     Route: 065
     Dates: start: 20120426, end: 20120426
  16. PARACETAMOL [Concomitant]
     Route: 065
     Dates: start: 20120508, end: 20120509
  17. DOPAMINE [Concomitant]
     Indication: HYPOTENSION
     Route: 065
     Dates: start: 20120509, end: 20120509
  18. DOPAMINE [Concomitant]
     Indication: RENAL IMPAIRMENT
  19. AZASETRON HYDROCHLORIDE [Concomitant]
     Indication: PRODUCT USED FOR UNKNOWN INDICATION
     Route: 065
     Dates: start: 20120427, end: 20120427
  20. LENOGRASTIM [Concomitant]
     Indication: NEUTROPHIL COUNT DECREASED
     Route: 065
     Dates: start: 20120419, end: 20120419
  21. SODIUM RABEPRAZOLE [Concomitant]
     Indication: PRODUCT USED FOR UNKNOWN INDICATION
     Route: 065
  22. D-CHLORPHENIRAMINE MALEATE [Concomitant]
     Indication: PRODUCT USED FOR UNKNOWN INDICATION
     Route: 065
  23. VEEN-F [Concomitant]
     Indication: PRODUCT USED FOR UNKNOWN INDICATION
     Route: 065
  24. SULFAMETHOXAZOLE TRIMETHOPRIM [Concomitant]
     Indication: PRODUCT USED FOR UNKNOWN INDICATION
     Route: 065
  25. CEFEPIME DIHYDROCHLORIDE HYDRATE [Concomitant]
     Indication: PRODUCT USED FOR UNKNOWN INDICATION
     Route: 065

REACTIONS (4)
  - Vomiting [Recovered/Resolved]
  - Dehydration [Recovered/Resolved]
  - Renal failure [Recovered/Resolved]
  - Febrile neutropenia [Unknown]
